FAERS Safety Report 5241877-X (Version None)
Quarter: 2007Q1

REPORT INFORMATION
  Report Type: 
  Country: None (occurrence: None)
  Receive Date: 20070220
  Receipt Date: 20070209
  Transmission Date: 20070707
  Serious: Yes (Other)
  Sender: FDA-Public Use
  Company Number: FR-PFIZER INC-2007012316

PATIENT
  Age: 34 Year
  Sex: Male

DRUGS (3)
  1. ATARAX [Suspect]
     Dosage: DAILY DOSE:1500MG
     Route: 048
     Dates: start: 20070209, end: 20070209
  2. ALPRAZOLAM [Concomitant]
     Route: 048
  3. VENLAFAXINE HCL [Concomitant]
     Route: 048

REACTIONS (5)
  - DYSPNOEA [None]
  - INTENTIONAL OVERDOSE [None]
  - NAUSEA [None]
  - SUICIDE ATTEMPT [None]
  - VOMITING [None]
